FAERS Safety Report 6255605-2 (Version None)
Quarter: 2009Q3

REPORT INFORMATION
  Report Type: 
  Country: None (occurrence: None)
  Receive Date: 20090701
  Receipt Date: 20090618
  Transmission Date: 20100115
  Serious: Yes (Hospitalization, Other)
  Sender: FDA-Public Use
  Company Number: 236778K09USA

PATIENT
  Age: 50 Year
  Sex: Female

DRUGS (2)
  1. REBIF [Suspect]
     Indication: MULTIPLE SCLEROSIS
  2. AVONEX [Suspect]
     Indication: MULTIPLE SCLEROSIS
     Dosage: 30 MCG, 1 IN 1 WEEKS, INTRAMUSCULAR
     Route: 030
     Dates: start: 19970101

REACTIONS (2)
  - BREAST CANCER [None]
  - CYSTITIS INTERSTITIAL [None]
